FAERS Safety Report 11399544 (Version 1)
Quarter: 2015Q3

REPORT INFORMATION
  Report Type: Spontaneous
  Country: CA (occurrence: CA)
  Receive Date: 20150820
  Receipt Date: 20150820
  Transmission Date: 20151125
  Serious: Yes (Other)
  Sender: FDA-Public Use
  Company Number: CA-SA-2015SA080697

PATIENT
  Age: 72 Year
  Sex: Female

DRUGS (7)
  1. RITUXAN [Concomitant]
     Active Substance: RITUXIMAB
  2. METHOTREXATE [Concomitant]
     Active Substance: METHOTREXATE
     Route: 058
     Dates: start: 200105, end: 201302
  3. ARAVA [Suspect]
     Active Substance: LEFLUNOMIDE
     Indication: RHEUMATOID ARTHRITIS
     Route: 065
     Dates: start: 200902
  4. CELEBREX [Suspect]
     Active Substance: CELECOXIB
     Indication: RHEUMATOID ARTHRITIS
     Route: 065
  5. ORENCIA [Concomitant]
     Active Substance: ABATACEPT
     Dosage: DID THIS INFUSION TWICE.
     Dates: start: 201302
  6. ENBREL [Concomitant]
     Active Substance: ETANERCEPT
     Indication: RHEUMATOID ARTHRITIS
     Dates: start: 200612, end: 201302
  7. PREDNISONE. [Suspect]
     Active Substance: PREDNISONE
     Indication: RHEUMATOID ARTHRITIS
     Route: 065
     Dates: end: 201412

REACTIONS (9)
  - Thyroid neoplasm [Not Recovered/Not Resolved]
  - Joint swelling [Unknown]
  - Local swelling [Unknown]
  - Candida infection [Not Recovered/Not Resolved]
  - Pain [Unknown]
  - Peripheral swelling [Unknown]
  - Bone swelling [Unknown]
  - Drug effect decreased [Unknown]
  - Rheumatoid arthritis [Unknown]
